FAERS Safety Report 9788523 (Version 2)
Quarter: 2013Q4

REPORT INFORMATION
  Report Type: Spontaneous
  Country: BR (occurrence: BR)
  Receive Date: 20131230
  Receipt Date: 20131230
  Transmission Date: 20140711
  Serious: Yes (Other)
  Sender: FDA-Public Use
  Company Number: BR-BAYER-2013-107118

PATIENT
  Age: 40 Year
  Sex: Female
  Weight: 52 kg

DRUGS (2)
  1. QLAIRA [Suspect]
     Indication: ABDOMINAL PAIN
     Dosage: UNK
     Route: 048
     Dates: start: 20130810, end: 2013
  2. QLAIRA [Suspect]
     Indication: HYPOMENORRHOEA
     Dosage: 1 DF, QD
     Route: 048
     Dates: start: 20131204

REACTIONS (10)
  - Chromaturia [Recovered/Resolved]
  - Vaginal infection [Not Recovered/Not Resolved]
  - Blood urine present [Recovered/Resolved]
  - Dysuria [Recovered/Resolved]
  - Asthenia [Not Recovered/Not Resolved]
  - Vulvovaginal pain [Not Recovered/Not Resolved]
  - Adnexa uteri pain [Not Recovered/Not Resolved]
  - Urinary tract infection [Recovered/Resolved]
  - Menstrual disorder [Not Recovered/Not Resolved]
  - Inappropriate schedule of drug administration [None]
